FAERS Safety Report 12371396 (Version 1)
Quarter: 2016Q2

REPORT INFORMATION
  Report Type: Spontaneous
  Country: IT (occurrence: IT)
  Receive Date: 20160516
  Receipt Date: 20160516
  Transmission Date: 20160815
  Serious: Yes (Hospitalization)
  Sender: FDA-Public Use
  Company Number: IT-FRESENIUS KABI-FK201602596

PATIENT
  Age: 63 Year
  Sex: Male

DRUGS (3)
  1. METOCLOPRAMIDE (MANUFACTURER UNKNOWN) [Suspect]
     Active Substance: METOCLOPRAMIDE
     Indication: NAUSEA
     Route: 065
  2. METOCLOPRAMIDE (MANUFACTURER UNKNOWN) [Suspect]
     Active Substance: METOCLOPRAMIDE
     Indication: VOMITING
  3. CRIZOTINIB [Suspect]
     Active Substance: CRIZOTINIB
     Indication: DISEASE PROGRESSION
     Route: 048

REACTIONS (3)
  - Presyncope [Unknown]
  - Drug interaction [Unknown]
  - Sinus bradycardia [Recovering/Resolving]
